FAERS Safety Report 4436155-2 (Version None)
Quarter: 2004Q3

REPORT INFORMATION
  Report Type: 
  Country: None (occurrence: None)
  Receive Date: 20040728
  Receipt Date: 20040525
  Transmission Date: 20050211
  Serious: Yes (Other)
  Sender: FDA-Public Use
  Company Number: 206770

PATIENT
  Age: 66 Year
  Sex: Male

DRUGS (3)
  1. RITUXAN [Suspect]
     Indication: NON-HODGKIN'S LYMPHOMA
     Dosage: INTRAVENOUS
     Route: 042
  2. ACETAMINOPHEN [Concomitant]
  3. DIPHENYDRAMINE (DIPHENYDRAMINE NOS) [Concomitant]

REACTIONS (1)
  - HYPERTENSION [None]
